FAERS Safety Report 7690865-2 (Version None)
Quarter: 2011Q3

REPORT INFORMATION
  Report Type: 
  Country: None (occurrence: None)
  Receive Date: 20110818
  Receipt Date: 20110816
  Transmission Date: 20111222
  Serious: Yes (Other)
  Sender: FDA-Public Use
  Company Number: GXKR2011DE02432

PATIENT
  Sex: Female
  Weight: 56 kg

DRUGS (1)
  1. METHOTREXATE [Suspect]
     Indication: JUVENILE ARTHRITIS
     Dosage: 10 MG, QW
     Route: 048
     Dates: start: 20110708, end: 20110722

REACTIONS (6)
  - FALL [None]
  - MUSCLE SPASMS [None]
  - EPILEPSY [None]
  - UNRESPONSIVE TO STIMULI [None]
  - URINARY INCONTINENCE [None]
  - PUPIL FIXED [None]
